FAERS Safety Report 7417307-6 (Version None)
Quarter: 2011Q2

REPORT INFORMATION
  Report Type: 
  Country: None (occurrence: None)
  Receive Date: 20110415
  Receipt Date: 20110408
  Transmission Date: 20111010
  Serious: Yes (Hospitalization)
  Sender: FDA-Public Use
  Company Number: ES-BRISTOL-MYERS SQUIBB COMPANY-14997738

PATIENT
  Age: 62 Year
  Sex: Male
  Weight: 102 kg

DRUGS (3)
  1. CETUXIMAB [Suspect]
     Indication: NON-SMALL CELL LUNG CANCER
     Dosage: CETUXIMAB 5MG/ML,MOST RECENT INF-21FEB10,17FEB10 TEM DISCONT ON 21FEB10 14JAN-21FEB2010 (38D)
     Route: 042
     Dates: start: 20100114, end: 20100221
  2. CISPLATIN [Suspect]
     Indication: NON-SMALL CELL LUNG CANCER
     Dosage: DAY 1 OF 21 DAYS CYCLE,MOST RECENT INF-10FEB10 TEMP DISC ON 21FEB10 14JAN-21FEB10(38D)
     Route: 042
     Dates: start: 20100114, end: 20100221
  3. GEMCITABINE [Suspect]
     Indication: NON-SMALL CELL LUNG CANCER
     Dosage: DAY 1,8, OF 21 DAYS CYCLE,RECENT INF-21FEB10,,17FEB10 TEMP DISC ON 21FEB10 14JAN-21FEB2010 (38D)
     Route: 042
     Dates: start: 20100114, end: 20100221

REACTIONS (3)
  - WHITE BLOOD CELL COUNT DECREASED [None]
  - FEBRILE NEUTROPENIA [None]
  - PLATELET COUNT DECREASED [None]
